FAERS Safety Report 17893608 (Version 1)
Quarter: 2020Q2

REPORT INFORMATION
  Report Type: Spontaneous
  Country: ES (occurrence: ES)
  Receive Date: 20200615
  Receipt Date: 20200615
  Transmission Date: 20200714
  Serious: Yes (Hospitalization)
  Sender: FDA-Public Use
  Company Number: ES-CADILA HEALTHCARE LIMITED-ES-ZYDUS-026686

PATIENT

DRUGS (7)
  1. REXER [Suspect]
     Active Substance: MIRTAZAPINE
     Indication: DEPRESSION
     Dosage: 15 MILLIGRAM,0-0-1,(INTERVAL :24 HOURS)
     Route: 048
     Dates: start: 201709
  2. ATORVASTATINA [Concomitant]
     Active Substance: ATORVASTATIN
     Dosage: 20 MILLIGRAM,1/24H,(INTERVAL :24 HOURS)
     Route: 048
     Dates: start: 201704
  3. ADIRO AP [Concomitant]
     Active Substance: ASPIRIN
     Dosage: 100 MILLIGRAM,1/24H,(INTERVAL :24 HOURS)
     Route: 048
     Dates: start: 201103
  4. SULPIRIDE [Concomitant]
     Active Substance: SULPIRIDE
     Dosage: 1-0-1 ()
     Route: 048
     Dates: start: 201709
  5. COAPROVEL 300/12.5 [Concomitant]
     Dosage: 1 DOSAGE FORM,1/24H,(INTERVAL :24 HOURS)
     Route: 048
     Dates: start: 200911
  6. SERTRALINE [Suspect]
     Active Substance: SERTRALINE HYDROCHLORIDE
     Indication: DEPRESSION
     Dosage: 75 MILLIGRAM,1-1/2-0,(INTERVAL :1 DAYS)
     Route: 048
     Dates: start: 201709
  7. ORFIDAL [Concomitant]
     Active Substance: LORAZEPAM
     Dosage: IF ANXIETY; AS NECESSARY
     Route: 048

REACTIONS (3)
  - Head injury [Recovered/Resolved]
  - Fall [Recovered/Resolved]
  - Syncope [Recovered/Resolved]

NARRATIVE: CASE EVENT DATE: 20171006
